FAERS Safety Report 21452262 (Version 1)
Quarter: 2022Q4

REPORT INFORMATION
  Report Type: Spontaneous
  Country: US (occurrence: US)
  Receive Date: 20221013
  Receipt Date: 20221013
  Transmission Date: 20230113
  Serious: Yes (Other)
  Sender: FDA-Public Use
  Company Number: US-FreseniusKabi-FK202213690

PATIENT

DRUGS (2)
  1. VINBLASTINE [Suspect]
     Active Substance: VINBLASTINE
     Indication: Product used for unknown indication
     Dosage: FIRST LINE TREATMENT
     Dates: start: 202104
  2. ADCETRIS [Suspect]
     Active Substance: BRENTUXIMAB VEDOTIN
     Indication: Hodgkin^s disease
     Dosage: FIRST LINE TREATMENT
     Dates: start: 202104

REACTIONS (1)
  - Neuropathy peripheral [Recovered/Resolved]
